FAERS Safety Report 20177151 (Version 2)
Quarter: 2022Q1

REPORT INFORMATION
  Report Type: Report from Study
  Country: CA (occurrence: CA)
  Receive Date: 20211213
  Receipt Date: 20220111
  Transmission Date: 20220424
  Serious: Yes (Other)
  Sender: FDA-Public Use
  Company Number: CA-BAYER-2021A265490

PATIENT

DRUGS (3)
  1. EYLEA [Suspect]
     Active Substance: AFLIBERCEPT
     Indication: Diabetic retinal oedema
     Dosage: UNK, OD EYE, TOTAL OF 7 INJECTIONS ON THE RIGHT EYE AND 13 ON THE LEFT EYE
     Dates: start: 20200207, end: 20211104
  2. EYLEA [Suspect]
     Active Substance: AFLIBERCEPT
     Dosage: UNK, OS EYE
  3. INSULIN NOS [Concomitant]
     Active Substance: INSULIN NOS
     Indication: Diabetes mellitus

REACTIONS (2)
  - Toxic anterior segment syndrome [Not Recovered/Not Resolved]
  - Cataract operation [Unknown]

NARRATIVE: CASE EVENT DATE: 20211207
